FAERS Safety Report 8160422-2 (Version None)
Quarter: 2012Q1

REPORT INFORMATION
  Report Type: 
  Country: None (occurrence: None)
  Receive Date: 20120223
  Receipt Date: 20120217
  Transmission Date: 20120608
  Serious: Yes (Death, Hospitalization, Other)
  Sender: FDA-Public Use
  Company Number: US-CELGENEUS-163-21880-12011426

PATIENT
  Sex: Female

DRUGS (10)
  1. VALTREX [Concomitant]
     Dosage: 500 MILLIGRAM
     Route: 065
  2. FLORINEF [Concomitant]
     Dosage: .1 MILLIGRAM
     Route: 048
  3. TRAMADOL HCL [Concomitant]
     Route: 065
  4. MULTI-VITAMINS [Concomitant]
     Route: 065
  5. COLESTIPOL HYDROCHLORIDE [Concomitant]
     Route: 065
  6. VITAMIN B-12 [Concomitant]
     Route: 065
  7. GABAPENTIN [Concomitant]
     Route: 065
  8. FLOVENT [Concomitant]
     Route: 065
  9. REVLIMID [Suspect]
     Indication: MULTIPLE MYELOMA
     Dosage: 15 MILLIGRAM
     Route: 048
     Dates: start: 20110309, end: 20120101
  10. COUMADIN [Concomitant]
     Route: 065

REACTIONS (6)
  - HALLUCINATION [None]
  - EPISTAXIS [None]
  - COUGH [None]
  - KIDNEY INFECTION [None]
  - DIZZINESS [None]
  - PNEUMONIA [None]
